FAERS Safety Report 8223332-8 (Version None)
Quarter: 2012Q1

REPORT INFORMATION
  Report Type: 
  Country: None (occurrence: None)
  Receive Date: 20120312
  Receipt Date: 20120227
  Transmission Date: 20120608
  Serious: Yes (Death, Life-Threatening, Hospitalization, Other)
  Sender: FDA-Public Use
  Company Number: 2009AL002790

PATIENT
  Age: 61 Year
  Sex: Male

DRUGS (14)
  1. WARFARIN SODIUM [Concomitant]
  2. DOPAMINE HCL [Concomitant]
  3. ASPIRIN [Concomitant]
  4. ALLOPURINOL [Concomitant]
  5. CEFADROXIL [Concomitant]
  6. COREG [Concomitant]
  7. DIGOXIN [Suspect]
     Indication: PRODUCT USED FOR UNKNOWN INDICATION
     Dosage: 0.25 MG;QD;PO
     Route: 048
     Dates: start: 19970101, end: 20081117
  8. HYDROCHLOROTHIAZIDE [Concomitant]
  9. LOVENOX [Concomitant]
  10. ENALAPRIL MALEATE [Concomitant]
  11. LEVOPHED [Concomitant]
  12. HYDROCODONE BITARTRATE AND ACETAMINOPHEN [Concomitant]
  13. CARVEDILOL [Concomitant]
  14. TRAMADOL HCL [Concomitant]

REACTIONS (27)
  - ECONOMIC PROBLEM [None]
  - BLOOD UREA INCREASED [None]
  - TACHYCARDIA [None]
  - ACCIDENT [None]
  - BLOOD POTASSIUM INCREASED [None]
  - NAIL AVULSION [None]
  - CARDIOMEGALY [None]
  - OBESITY [None]
  - LIMB INJURY [None]
  - BLOOD CREATININE INCREASED [None]
  - SURGERY [None]
  - CARDIAC FAILURE CONGESTIVE [None]
  - PAIN IN EXTREMITY [None]
  - LEFT VENTRICULAR HYPERTROPHY [None]
  - TRICUSPID VALVE INCOMPETENCE [None]
  - BLOOD GLUCOSE INCREASED [None]
  - LACERATION [None]
  - OEDEMA PERIPHERAL [None]
  - MITRAL VALVE INCOMPETENCE [None]
  - BUNDLE BRANCH BLOCK RIGHT [None]
  - CARDIOACTIVE DRUG LEVEL INCREASED [None]
  - PRESYNCOPE [None]
  - ATRIAL FIBRILLATION [None]
  - CARDIAC ARREST [None]
  - CHEST PAIN [None]
  - HYPERTENSION [None]
  - HYPERHIDROSIS [None]
